FAERS Safety Report 17849940 (Version 1)
Quarter: 2020Q2

REPORT INFORMATION
  Report Type: Spontaneous
  Country: DK (occurrence: DK)
  Receive Date: 20200602
  Receipt Date: 20200602
  Transmission Date: 20200714
  Serious: Yes (Other)
  Sender: FDA-Public Use
  Company Number: DK-ACCORD-183880

PATIENT
  Age: 24 Year
  Sex: Male

DRUGS (1)
  1. ESCITALOPRAM [Suspect]
     Active Substance: ESCITALOPRAM OXALATE
     Indication: DEPRESSION
     Dosage: DOSE: START: 10 MG, INCREASING TO 20 MG. STRENGTH: 10 MG AND 20 MG.
     Route: 048
     Dates: start: 20150625, end: 20160318

REACTIONS (14)
  - Cognitive disorder [Not Recovered/Not Resolved]
  - Asthenia [Unknown]
  - Withdrawal syndrome [Unknown]
  - Weight increased [Recovered/Resolved]
  - Fatigue [Unknown]
  - Myalgia [Unknown]
  - Ejaculation delayed [Unknown]
  - Erectile dysfunction [Not Recovered/Not Resolved]
  - Arthralgia [Unknown]
  - Weight decreased [Unknown]
  - Tinnitus [Unknown]
  - Post-traumatic stress disorder [Unknown]
  - Appetite disorder [Unknown]
  - Headache [Unknown]

NARRATIVE: CASE EVENT DATE: 2015
